FAERS Safety Report 12631025 (Version 2)
Quarter: 2016Q3

REPORT INFORMATION
  Report Type: Spontaneous
  Country: US (occurrence: US)
  Receive Date: 20160808
  Receipt Date: 20160808
  Transmission Date: 20161109
  Serious: No
  Sender: FDA-Public Use
  Company Number: US-BEH-2015051896

PATIENT
  Sex: Female
  Weight: 60 kg

DRUGS (15)
  1. XYZAL [Concomitant]
     Active Substance: LEVOCETIRIZINE DIHYDROCHLORIDE
     Route: 048
  2. CVS DIGESTIVE PROBIOTIC CAP [Concomitant]
     Route: 048
  3. TOPAMAX [Concomitant]
     Active Substance: TOPIRAMATE
     Route: 048
  4. IMITREX [Concomitant]
     Active Substance: SUMATRIPTAN SUCCINATE
     Route: 048
  5. ACETAMINOPHEN. [Concomitant]
     Active Substance: ACETAMINOPHEN
     Dosage: 1 DOSE AS DIRECTED
     Route: 048
  6. ALBUTEROL 0.083% [Concomitant]
     Dosage: 1 DOSE AS NEEDED
  7. HIZENTRA [Suspect]
     Active Substance: HUMAN IMMUNOGLOBULIN G
     Indication: HYPOGAMMAGLOBULINAEMIA
     Route: 058
  8. LIDOCAINE. [Concomitant]
     Active Substance: LIDOCAINE
     Dosage: 1 DOSE AS DIRECTED
  9. LIDOCAINE/ PRILOCAINE [Concomitant]
     Dosage: 1 DOSE AS DIRECTED
  10. ALLEGRA-D 24 [Concomitant]
     Route: 048
  11. SINGULAIR [Concomitant]
     Active Substance: MONTELUKAST SODIUM
     Dosage: 1 TABLET DAILY
     Route: 048
  12. AMITRIPTYLINE [Concomitant]
     Active Substance: AMITRIPTYLINE
     Route: 048
  13. EPIPEN AUTOINJECTOR [Concomitant]
     Dosage: 1 DOSE AS NEEDED
  14. VENTOLIN HFA 90 MCG [Concomitant]
     Dosage: 1 DOSE AS NEEDED
  15. DIPHENHYDRAMINE. [Concomitant]
     Active Substance: DIPHENHYDRAMINE
     Indication: ANAPHYLACTIC REACTION
     Dosage: 1 DOSE AS NEEDED
     Route: 048

REACTIONS (4)
  - Contusion [Unknown]
  - Lethargy [Unknown]
  - Pain [Unknown]
  - Headache [Unknown]
